FAERS Safety Report 8013707-4 (Version None)
Quarter: 2011Q4

REPORT INFORMATION
  Report Type: 
  Country: None (occurrence: None)
  Receive Date: 20111229
  Receipt Date: 20111219
  Transmission Date: 20120403
  Serious: Yes (Hospitalization)
  Sender: FDA-Public Use
  Company Number: JP-ELI_LILLY_AND_COMPANY-JP201112000405

PATIENT
  Age: 86 Year
  Sex: Female

DRUGS (2)
  1. FORTEO [Suspect]
     Dosage: UNK
     Route: 058
     Dates: start: 20111218
  2. FORTEO [Suspect]
     Dosage: UNK, QD
     Route: 058
     Dates: start: 20111115, end: 20111212

REACTIONS (3)
  - DECREASED APPETITE [None]
  - DEHYDRATION [None]
  - CONSTIPATION [None]
